FAERS Safety Report 7331293-9 (Version None)
Quarter: 2011Q1

REPORT INFORMATION
  Report Type: 
  Country: None (occurrence: None)
  Receive Date: 20110304
  Receipt Date: 20110208
  Transmission Date: 20110831
  Serious: No
  Sender: FDA-Public Use
  Company Number: US-B.I. PHARMACEUTICALS,INC./RIDGEFIELD-2010-BP-12856BP

PATIENT
  Age: 70 Year
  Sex: Female
  Weight: 87.09 kg

DRUGS (10)
  1. ALBUTEROL [Concomitant]
     Indication: DYSPNOEA
  2. LEVOTHYROXINE SODIUM [Concomitant]
     Dosage: 100 MCG
     Route: 048
  3. PRAVASTATIN SODIUM [Concomitant]
     Dosage: 40 MG
     Route: 048
  4. SPIRIVA [Suspect]
     Indication: EMPHYSEMA
     Dosage: 18 MCG
     Route: 055
     Dates: start: 20100201
  5. ASPIRIN [Concomitant]
     Dosage: 325 MG
     Route: 048
  6. LOVAZA [Concomitant]
     Dosage: 2000 MG
     Route: 048
  7. OMEPRAZOLE [Concomitant]
     Dosage: 20 MG
     Route: 048
  8. FLUTICASONE PROPIONATE [Concomitant]
     Indication: HYPERSENSITIVITY
     Route: 045
  9. LISINOPRIL AND HYDROCHLOROTHIAZIDE [Concomitant]
     Indication: BLOOD PRESSURE
     Route: 048
  10. NAPROSYN [Concomitant]
     Dosage: 1000 MG
     Route: 048

REACTIONS (1)
  - DISCOMFORT [None]
